FAERS Safety Report 4450660-4 (Version None)
Quarter: 2004Q3

REPORT INFORMATION
  Report Type: 
  Country: None (occurrence: None)
  Receive Date: 20040914
  Receipt Date: 20040830
  Transmission Date: 20050211
  Serious: Yes (Hospitalization)
  Sender: FDA-Public Use
  Company Number: 2004061446

PATIENT
  Age: 82 Year
  Sex: Male

DRUGS (10)
  1. NEURONTIN [Suspect]
     Indication: PAIN
     Dosage: 1200 MG (400 MG,3 IN 1 D), ORAL
     Route: 048
     Dates: start: 20040803
  2. OXYCODONE (OXYCODONE) [Suspect]
     Indication: ILL-DEFINED DISORDER
  3. DIGOXIN [Concomitant]
  4. LISINOPRIL [Concomitant]
  5. HYDROCHLOROTHIAZIDE [Concomitant]
  6. BACLOFEN [Concomitant]
  7. WARFARIN SODIUM [Concomitant]
  8. MELATONIN (MELATONIN) [Concomitant]
  9. ACETAMINOPHEN [Concomitant]
  10. SIMVASTATIN [Concomitant]

REACTIONS (2)
  - DRUG INTERACTION [None]
  - SOMNOLENCE [None]
